FAERS Safety Report 18752029 (Version 1)
Quarter: 2021Q1

REPORT INFORMATION
  Report Type: Other
  Country: US (occurrence: US)
  Receive Date: 20210118
  Receipt Date: 20210118
  Transmission Date: 20210419
  Serious: Yes (Other)
  Sender: FDA-Public Use
  Company Number: US-ROCHE-2749495

PATIENT
  Sex: Female

DRUGS (2)
  1. PERTUZUMAB. [Suspect]
     Active Substance: PERTUZUMAB
     Indication: HER2 POSITIVE BREAST CANCER
     Route: 065
  2. TRASTUZUMAB. [Suspect]
     Active Substance: TRASTUZUMAB
     Indication: HER2 POSITIVE BREAST CANCER
     Route: 065

REACTIONS (9)
  - Seroma [Unknown]
  - Infection [Unknown]
  - Wound dehiscence [Unknown]
  - Necrosis [Unknown]
  - Wound decomposition [Unknown]
  - Impaired healing [Unknown]
  - Skin flap necrosis [Unknown]
  - Haematoma [Unknown]
  - Surgical failure [Unknown]
